FAERS Safety Report 6233767-0 (Version None)
Quarter: 2009Q2

REPORT INFORMATION
  Report Type: 
  Country: None (occurrence: None)
  Receive Date: 20090616
  Receipt Date: 20090616
  Transmission Date: 20091009
  Serious: No
  Sender: FDA-Public Use
  Company Number: None

PATIENT
  Age: 75 Year
  Sex: Female
  Weight: 70.3075 kg

DRUGS (5)
  1. VALPROIC ACID [Suspect]
     Indication: BIPOLAR DISORDER
     Dosage: 2 CAPSULES BEDTIME PO
     Route: 048
     Dates: start: 20090309, end: 20090504
  2. GEODON [Suspect]
     Dosage: 20 MG PRN IM
     Route: 030
     Dates: start: 20090326, end: 20090412
  3. VALPORIC [Concomitant]
  4. GEODON [Concomitant]
  5. HALDOL [Concomitant]

REACTIONS (11)
  - ABNORMAL BEHAVIOUR [None]
  - AGITATION [None]
  - ANGER [None]
  - DROOLING [None]
  - FEELING ABNORMAL [None]
  - IMPAIRED WORK ABILITY [None]
  - OVERDOSE [None]
  - PHYSICAL ASSAULT [None]
  - PROTRUSION TONGUE [None]
  - TREMOR [None]
  - VERBAL ABUSE [None]
